FAERS Safety Report 8488292-3 (Version None)
Quarter: 2012Q2

REPORT INFORMATION
  Report Type: 
  Country: None (occurrence: None)
  Receive Date: 20120620
  Receipt Date: 20120606
  Transmission Date: 20120825
  Serious: Yes (Death, Hospitalization)
  Sender: FDA-Public Use
  Company Number: 2012PROUSA01074

PATIENT
  Age: 65 Year
  Weight: 56.3 kg

DRUGS (14)
  1. PROVENGE (SIPULEUCEL-T) SUSPENSION 304723-1 [Suspect]
     Indication: PROSTATE CANCER METASTATIC
     Dosage: 250 ML, SINGLE, INTRAVENOUS
     Route: 042
     Dates: start: 20120119, end: 20120119
  2. PROVENGE (SIPULEUCEL-T) SUSPENSION 304723-1 [Suspect]
     Indication: PROSTATE CANCER METASTATIC
     Dosage: 250 ML, SINGLE, INTRAVENOUS
     Route: 042
     Dates: start: 20120202, end: 20120202
  3. POTASSIUM CHLORIDE [Concomitant]
  4. OMEPRAZOLE [Concomitant]
  5. PROCHLORPERAZINE MALEATE (PROCHLORPERAZINE MALEATE) [Concomitant]
  6. ZOFRAN	100955301/ (ONDANSETRON) ) [Concomitant]
  7. PREDNISONE TAB [Concomitant]
  8. FOLIC ACID [Concomitant]
  9. MORPHINE SULFATE INJ [Concomitant]
  10. PROVENGE [Concomitant]
  11. FLUOXETINE [Concomitant]
  12. ABIRATERONE (ABIRATERONE) [Concomitant]
  13. OXYBUTYNIN (OXYBUTYN]N) [Concomitant]
  14. LEVOTHYROXINE SODIUM [Concomitant]

REACTIONS (12)
  - HAEMORRHAGE INTRACRANIAL [None]
  - RESPIRATORY FAILURE [None]
  - BRAIN OEDEMA [None]
  - SYNCOPE [None]
  - CONTUSION [None]
  - SUBDURAL HAEMORRHAGE [None]
  - SUBDURAL HAEMATOMA [None]
  - METASTASIS [None]
  - SKULL FRACTURE [None]
  - ENCEPHALOPATHY [None]
  - FALL [None]
  - BRAIN INJURY [None]
